FAERS Safety Report 17750540 (Version 1)
Quarter: 2020Q2

REPORT INFORMATION
  Report Type: Spontaneous
  Country: US (occurrence: US)
  Receive Date: 20200506
  Receipt Date: 20200506
  Transmission Date: 20200714
  Serious: No
  Sender: FDA-Public Use
  Company Number: None

PATIENT
  Age: 28 Year
  Sex: Female
  Weight: 75.15 kg

DRUGS (1)
  1. NONOXYNOL-9 [Suspect]
     Active Substance: NONOXYNOL-9
     Indication: CONTRACEPTION
     Dates: start: 20200501, end: 20200506

REACTIONS (2)
  - Dysmenorrhoea [None]
  - Metrorrhagia [None]

NARRATIVE: CASE EVENT DATE: 20200501
